FAERS Safety Report 13752709 (Version 2)
Quarter: 2017Q4

REPORT INFORMATION
  Report Type: Spontaneous
  Country: US (occurrence: US)
  Receive Date: 20170713
  Receipt Date: 20171018
  Transmission Date: 20180320
  Serious: Yes (Disabling, Other)
  Sender: FDA-Public Use
  Company Number: US-REGENERON PHARMACEUTICALS, INC.-2017-18499

PATIENT

DRUGS (2)
  1. EYLEA [Suspect]
     Active Substance: AFLIBERCEPT
     Indication: AGE-RELATED MACULAR DEGENERATION
     Dosage: RIGHT EYE, EVERY 4-5 WEEKS
     Route: 031
     Dates: start: 20130204
  2. EYLEA [Suspect]
     Active Substance: AFLIBERCEPT
     Dosage: RIGHT EYE, EVERY 4-5 WEEKS LSAT DOSE
     Route: 031
     Dates: start: 20170929, end: 20170929

REACTIONS (6)
  - Vision blurred [Recovered/Resolved]
  - Eye pain [Not Recovered/Not Resolved]
  - Eye inflammation [Recovered/Resolved]
  - Visual acuity reduced [Unknown]
  - Blindness unilateral [Unknown]
  - Vitreous haze [Not Recovered/Not Resolved]

NARRATIVE: CASE EVENT DATE: 20170929
